FAERS Safety Report 7019821-4 (Version None)
Quarter: 2010Q3

REPORT INFORMATION
  Report Type: 
  Country: None (occurrence: None)
  Receive Date: 20100922
  Receipt Date: 20100909
  Transmission Date: 20110219
  Serious: Yes (Other)
  Sender: FDA-Public Use
  Company Number: BVT-000655

PATIENT
  Sex: Female

DRUGS (1)
  1. KINERET [Suspect]
     Indication: PRODUCT USED FOR UNKNOWN INDICATION
     Dates: start: 20060114

REACTIONS (1)
  - CIRCULATORY COLLAPSE [None]
